FAERS Safety Report 6981868-1 (Version None)
Quarter: 2010Q3

REPORT INFORMATION
  Report Type: 
  Country: None (occurrence: None)
  Receive Date: 20100909
  Receipt Date: 20100902
  Transmission Date: 20110219
  Serious: Yes (Other)
  Sender: FDA-Public Use
  Company Number: 015134

PATIENT
  Sex: Male
  Weight: 73 kg

DRUGS (2)
  1. KEPPRA [Suspect]
     Indication: EPILEPSY
     Dosage: 500 MG BID, ORAL
     Route: 048
     Dates: start: 20030102
  2. TIMONIL [Concomitant]

REACTIONS (2)
  - DUPUYTREN'S CONTRACTURE [None]
  - PANCREATITIS [None]
